FAERS Safety Report 9009327 (Version 1)
Quarter: 2013Q1

REPORT INFORMATION
  Report Type: Spontaneous
  Country: US (occurrence: US)
  Receive Date: 20130111
  Receipt Date: 20130111
  Transmission Date: 20140127
  Serious: Yes (Hospitalization)
  Sender: FDA-Public Use
  Company Number: US-PFIZER INC-2013009817

PATIENT
  Age: 82 Year
  Sex: Female

DRUGS (4)
  1. CLINDAMYCIN HCL [Suspect]
     Dosage: 2 DOSES
  2. POTASSIUM [Concomitant]
  3. LOSARTAN [Concomitant]
  4. ESCITALOPRAM [Concomitant]

REACTIONS (1)
  - Acute generalised exanthematous pustulosis [Recovered/Resolved]
